FAERS Safety Report 18952497 (Version 1)
Quarter: 2021Q1

REPORT INFORMATION
  Report Type: Spontaneous
  Country: FR (occurrence: FR)
  Receive Date: 20210301
  Receipt Date: 20210301
  Transmission Date: 20210420
  Serious: Yes (Hospitalization)
  Sender: FDA-Public Use
  Company Number: FR-ASTRAZENECA-2021A011980

PATIENT
  Age: 50 Year
  Sex: Female

DRUGS (2)
  1. INEXIUM [Suspect]
     Active Substance: ESOMEPRAZOLE
     Indication: PRODUCT USED FOR UNKNOWN INDICATION
     Dosage: 40 MILLIGRAM, 2/DAY
     Route: 048
  2. CORTISONE [Concomitant]
     Active Substance: CORTISONE
     Route: 065

REACTIONS (4)
  - Face oedema [Not Recovered/Not Resolved]
  - Localised oedema [Not Recovered/Not Resolved]
  - Eyelid oedema [Not Recovered/Not Resolved]
  - Palpitations [Not Recovered/Not Resolved]
